FAERS Safety Report 9238296 (Version 1)
Quarter: 2013Q2

REPORT INFORMATION
  Report Type: Spontaneous
  Country: CA (occurrence: None)
  Receive Date: 20130416
  Receipt Date: 20130416
  Transmission Date: 20140414
  Serious: Yes (Other)
  Sender: FDA-Public Use
  Company Number: 2013-001082

PATIENT
  Age: 72 Year
  Sex: Female
  Weight: 65.8 kg

DRUGS (5)
  1. ACTONEL (RISEDRONATE SODIUM) TABLET, 35MG [Suspect]
     Route: 048
  2. PROLIA (DENOSUMAB) [Suspect]
     Dosage: EVERY SIX MONTHS
     Route: 058
     Dates: start: 201111
  3. FOSAMAX (ALENDRONATE SODIUM) [Suspect]
     Route: 048
  4. CALCIUM + VITAMIN D [Concomitant]
  5. SYNTHROID (LEVOTHYROXINE SODIUM) [Concomitant]

REACTIONS (3)
  - Atypical femur fracture [None]
  - Pain in extremity [None]
  - Stress fracture [None]
